FAERS Safety Report 4802209-1 (Version None)
Quarter: 2005Q4

REPORT INFORMATION
  Report Type: 
  Country: None (occurrence: None)
  Receive Date: 20051011
  Receipt Date: 20051003
  Transmission Date: 20060501
  Serious: Yes (Other)
  Sender: FDA-Public Use
  Company Number: 005753

PATIENT
  Age: 76 Year
  Sex: Female

DRUGS (9)
  1. TAMOXIFEN CITRATE [Suspect]
     Indication: BREAST CANCER IN SITU
     Dosage: 10 MG, BID, ORAL
     Route: 048
     Dates: start: 20050923, end: 20051003
  2. CLOZARIL [Concomitant]
  3. NAVANE [Concomitant]
  4. SYNTHROID [Concomitant]
  5. MAXZIDE [Concomitant]
  6. SULINDAC [Concomitant]
  7. TYLENOL ARTHRITIS [Concomitant]
  8. VITAMIN B12 [Concomitant]
  9. IMODIUM [Concomitant]

REACTIONS (1)
  - SUICIDAL IDEATION [None]
